FAERS Safety Report 20493484 (Version 1)
Quarter: 2022Q1

REPORT INFORMATION
  Report Type: Spontaneous
  Country: IN (occurrence: IN)
  Receive Date: 20220220
  Receipt Date: 20220220
  Transmission Date: 20220423
  Serious: Yes (Other)
  Sender: FDA-Public Use
  Company Number: IN-AMGEN-INDSP2022026723

PATIENT

DRUGS (1)
  1. NPLATE [Suspect]
     Active Substance: ROMIPLOSTIM
     Indication: Immune thrombocytopenia
     Route: 065

REACTIONS (15)
  - Hypothyroidism [Unknown]
  - Anaemia [Unknown]
  - Drug specific antibody present [Unknown]
  - Leukocytosis [Unknown]
  - Ear pain [Unknown]
  - Vertigo [Unknown]
  - Constipation [Unknown]
  - Vomiting [Unknown]
  - Asthenia [Unknown]
  - Oedema [Unknown]
  - Pyrexia [Unknown]
  - Hypertriglyceridaemia [Unknown]
  - Headache [Unknown]
  - Heavy menstrual bleeding [Unknown]
  - Erythema [Unknown]
